FAERS Safety Report 7742886-9 (Version None)
Quarter: 2011Q3

REPORT INFORMATION
  Report Type: 
  Country: None (occurrence: None)
  Receive Date: 20110831
  Receipt Date: 20110824
  Transmission Date: 20111222
  Serious: Yes (Other)
  Sender: FDA-Public Use
  Company Number: 2011SP026166

PATIENT
  Sex: Female

DRUGS (1)
  1. NASONEX [Suspect]
     Indication: PRODUCT USED FOR UNKNOWN INDICATION
     Dosage: 2 DF;QD;NAS
     Route: 045
     Dates: start: 20060101

REACTIONS (4)
  - PRODUCT QUALITY ISSUE [None]
  - DEVICE BREAKAGE [None]
  - PHARYNGEAL OEDEMA [None]
  - NASAL OEDEMA [None]
